FAERS Safety Report 14777477 (Version 2)
Quarter: 2018Q2

REPORT INFORMATION
  Report Type: Report from Study
  Country: DE (occurrence: DE)
  Receive Date: 20180419
  Receipt Date: 20180507
  Transmission Date: 20180711
  Serious: Yes (Death, Life-Threatening)
  Sender: FDA-Public Use
  Company Number: DE-ACCORD-065687

PATIENT
  Age: 43 Year
  Sex: Male
  Weight: 73 kg

DRUGS (2)
  1. VARGATEF [Suspect]
     Active Substance: NINTEDANIB
     Indication: LUNG ADENOCARCINOMA
     Dosage: ONCOLOGY?ALSO RECEIVED 200 MG
     Route: 048
     Dates: start: 20160621
  2. DOCETAXEL. [Suspect]
     Active Substance: DOCETAXEL
     Indication: LUNG ADENOCARCINOMA
     Dosage: TOTAL DAILY DOSE AT ONSET:75 MG/ M^2 BODY SURFACE AREA.
     Route: 042
     Dates: start: 20160620

REACTIONS (11)
  - Skin ulcer [Recovered/Resolved]
  - Stomatitis [Recovered/Resolved]
  - Pulmonary embolism [Fatal]
  - White blood cell count decreased [Recovered/Resolved]
  - Dysgeusia [Recovered/Resolved]
  - Epistaxis [Recovered/Resolved]
  - Neutrophil count decreased [Recovered/Resolved]
  - Diarrhoea [Recovered/Resolved]
  - Fatigue [Unknown]
  - Cardiac failure [Fatal]
  - Anaemia [Recovered/Resolved]

NARRATIVE: CASE EVENT DATE: 20160625
